FAERS Safety Report 7021978-6 (Version None)
Quarter: 2010Q3

REPORT INFORMATION
  Report Type: 
  Country: None (occurrence: None)
  Receive Date: 20100928
  Receipt Date: 20100921
  Transmission Date: 20110219
  Serious: Yes (Other)
  Sender: FDA-Public Use
  Company Number: 2010MA002867

PATIENT
  Age: 52 Year
  Sex: Male
  Weight: 105 kg

DRUGS (2)
  1. RISPERIDONE [Suspect]
     Indication: PSYCHOTIC DISORDER
     Dosage: 37.5 MG; IM
  2. VENLAFAXINE HCL [Suspect]
     Indication: DEPRESSION
     Dates: start: 20090901, end: 20091027

REACTIONS (2)
  - ANGINA PECTORIS [None]
  - HYPERTENSION [None]
